FAERS Safety Report 9235772 (Version 1)
Quarter: 2013Q2

REPORT INFORMATION
  Report Type: Spontaneous
  Country: US (occurrence: None)
  Receive Date: 20130416
  Receipt Date: 20130416
  Transmission Date: 20140414
  Serious: Yes (Other)
  Sender: FDA-Public Use
  Company Number: None

PATIENT
  Age: 24 Year
  Sex: Female
  Weight: 56.7 kg

DRUGS (1)
  1. ICY HOT MEDICATED NO MESS APPLICATOR [Suspect]
     Indication: MUSCLE STRAIN
     Dosage: COVERED AREA ONCE TOP
     Route: 061
     Dates: start: 20130414, end: 20130414

REACTIONS (2)
  - Burning sensation [None]
  - Application site erythema [None]
